FAERS Safety Report 9314793 (Version 1)
Quarter: 2013Q2

REPORT INFORMATION
  Report Type: Spontaneous
  Country: CN (occurrence: CN)
  Receive Date: 20130529
  Receipt Date: 20130529
  Transmission Date: 20140414
  Serious: Yes (Other)
  Sender: FDA-Public Use
  Company Number: CN-ASTRAZENECA-2013SE37115

PATIENT
  Age: 47 Year
  Sex: Female

DRUGS (6)
  1. CRESTOR [Suspect]
     Indication: LIPID METABOLISM DISORDER
     Route: 048
     Dates: start: 20111015, end: 20111021
  2. CLOPIDOGREL [Concomitant]
  3. ACETYLSALICYLIC ACID [Concomitant]
  4. METOPROLOL SUCCINATE [Concomitant]
  5. ACARBOSE [Concomitant]
  6. PERIDOPRIL [Concomitant]

REACTIONS (3)
  - Blood lactate dehydrogenase increased [Not Recovered/Not Resolved]
  - Blood creatine phosphokinase increased [Not Recovered/Not Resolved]
  - Musculoskeletal pain [Not Recovered/Not Resolved]
